FAERS Safety Report 7208013-1 (Version None)
Quarter: 2011Q1

REPORT INFORMATION
  Report Type: 
  Country: None (occurrence: None)
  Receive Date: 20110104
  Receipt Date: 20101222
  Transmission Date: 20110831
  Serious: Yes (Other)
  Sender: FDA-Public Use
  Company Number: US-PFIZER INC-2010177939

PATIENT
  Sex: Female
  Weight: 49.887 kg

DRUGS (1)
  1. EFFEXOR XR [Suspect]
     Indication: DEPRESSION
     Dosage: 75 MG, DAILY
     Route: 048
     Dates: start: 20071201, end: 20101221

REACTIONS (4)
  - DRUG INEFFECTIVE [None]
  - RASH [None]
  - SKIN DISCOLOURATION [None]
  - FEELING JITTERY [None]
